FAERS Safety Report 4427258-7 (Version None)
Quarter: 2004Q3

REPORT INFORMATION
  Report Type: 
  Country: None (occurrence: None)
  Receive Date: 20040813
  Receipt Date: 20040813
  Transmission Date: 20050211
  Serious: Yes (Other)
  Sender: FDA-Public Use
  Company Number: None

PATIENT
  Sex: Female
  Weight: 58.0604 kg

DRUGS (1)
  1. ULTRAM [Suspect]
     Dosage: 50 MG ONE QID

REACTIONS (3)
  - DRUG INEFFECTIVE [None]
  - PAIN [None]
  - RASH [None]
